FAERS Safety Report 13254152 (Version 4)
Quarter: 2017Q3

REPORT INFORMATION
  Report Type: Report from Study
  Country: None (occurrence: US)
  Receive Date: 20170221
  Receipt Date: 20170920
  Transmission Date: 20171127
  Serious: Yes (Hospitalization, Other)
  Sender: FDA-Public Use
  Company Number: US-ABBVIE-17K-163-1875393-00

PATIENT
  Age: 74 Year
  Sex: Male

DRUGS (1)
  1. HUMIRA [Suspect]
     Active Substance: ADALIMUMAB
     Indication: COLITIS ULCERATIVE
     Route: 058
     Dates: start: 201609

REACTIONS (11)
  - Colitis ulcerative [Unknown]
  - Device issue [Unknown]
  - Drug ineffective [Unknown]
  - Fatigue [Unknown]
  - Seizure [Unknown]
  - Cerebrovascular accident [Recovered/Resolved]
  - Injection site pain [Unknown]
  - Musculoskeletal stiffness [Unknown]
  - Seizure [Recovered/Resolved]
  - Pain in extremity [Unknown]
  - Incorrect dose administered [Unknown]

NARRATIVE: CASE EVENT DATE: 201702
